FAERS Safety Report 5444502-8 (Version None)
Quarter: 2007Q3

REPORT INFORMATION
  Report Type: 
  Country: None (occurrence: None)
  Receive Date: 20070830
  Receipt Date: 20070822
  Transmission Date: 20080115
  Serious: Yes (Other)
  Sender: FDA-Public Use
  Company Number: 2007329344

PATIENT
  Age: 22 Year
  Sex: Male

DRUGS (3)
  1. NEOSPORIN PLUS PAIN RELIEF MAXIMUM STRENGTH (POLYMYXIN B SULFATE, NEOM [Suspect]
     Dosage: ONCE, OVER COVERED AREA OF SCRAPES, TOPICAL
     Route: 061
     Dates: start: 20070101, end: 20070101
  2. ADVIL [Concomitant]
  3. EXCEDRIN (MIGRAINE) [Concomitant]

REACTIONS (1)
  - ANAPHYLACTIC SHOCK [None]
